FAERS Safety Report 26201660 (Version 1)
Quarter: 2025Q4

REPORT INFORMATION
  Report Type: Spontaneous
  Country: US (occurrence: US)
  Receive Date: 20251226
  Receipt Date: 20251226
  Transmission Date: 20260118
  Serious: Yes (Life-Threatening, Hospitalization, Other)
  Sender: DR REDDYS
  Company Number: US-DRL-USA-USA/2025/12/019630

PATIENT
  Age: 25 Year
  Sex: Male

DRUGS (1)
  1. METHAMPHETAMINE [Suspect]
     Active Substance: METHAMPHETAMINE
     Indication: Cardiogenic shock

REACTIONS (4)
  - Cardiogenic shock [Unknown]
  - Cardiomyopathy [Unknown]
  - Adrenal insufficiency [Unknown]
  - Drug abuse [Unknown]
